FAERS Safety Report 9863738 (Version 1)
Quarter: 2014Q1

REPORT INFORMATION
  Report Type: Spontaneous
  Country: US (occurrence: US)
  Receive Date: 20140203
  Receipt Date: 20140203
  Transmission Date: 20141002
  Serious: No
  Sender: FDA-Public Use
  Company Number: US-PFIZER INC-2014029856

PATIENT
  Sex: Female

DRUGS (6)
  1. METHOTREXATE SODIUM [Suspect]
     Dosage: UNK
  2. PREMPRO [Suspect]
     Dosage: UNK
  3. CALTRATE 600 + VITAMIN D [Suspect]
     Dosage: UNK
  4. FOLIC ACID [Suspect]
     Dosage: UNK
  5. PILOCARPINE HYDROCHLORIDE [Suspect]
     Dosage: UNK
  6. ALENDRONATE [Suspect]
     Dosage: UNK

REACTIONS (1)
  - Bronchitis [Unknown]
